FAERS Safety Report 7589650-1 (Version None)
Quarter: 2011Q3

REPORT INFORMATION
  Report Type: 
  Country: None (occurrence: None)
  Receive Date: 20110705
  Receipt Date: 20110624
  Transmission Date: 20111222
  Serious: Yes (Hospitalization)
  Sender: FDA-Public Use
  Company Number: CA-JNJFOC-20110400499

PATIENT
  Sex: Female
  Weight: 119 kg

DRUGS (21)
  1. CITALOPRAM HYDROBROMIDE [Concomitant]
     Route: 048
     Dates: start: 20000101
  2. METFORMIN HCL [Concomitant]
     Route: 048
     Dates: start: 20030101
  3. OMEPRAZOLE [Concomitant]
     Route: 048
     Dates: start: 20071217
  4. TYLENOL W/ CODEINE [Concomitant]
     Route: 048
     Dates: start: 20100705
  5. ALBUTEROL [Concomitant]
     Route: 055
     Dates: start: 19960101
  6. AMITRIPTYLINE HCL [Concomitant]
     Route: 048
     Dates: start: 19900101
  7. CRESTOR [Concomitant]
     Route: 048
     Dates: start: 20070130
  8. PREVACID [Concomitant]
     Route: 048
     Dates: start: 20070814
  9. RANITIDINE [Concomitant]
     Route: 048
     Dates: start: 20071129
  10. GOLIMUMAB [Suspect]
     Indication: PSORIATIC ARTHROPATHY
     Route: 058
     Dates: start: 20060517
  11. MAALOX [Concomitant]
     Route: 048
     Dates: start: 20081110
  12. MICARDIS [Concomitant]
     Route: 048
     Dates: start: 20100420
  13. ALPRAZOLAM [Concomitant]
     Route: 048
     Dates: start: 19900101
  14. RABEPRAZOLE SODIUM [Concomitant]
     Route: 048
     Dates: start: 20000101
  15. CYCLOBENZAPRINE [Concomitant]
     Route: 048
     Dates: start: 20000101
  16. BICARBONATE [Concomitant]
     Route: 048
     Dates: start: 20081111
  17. ENTERIC COATED ACETYLSALICYLIC ACID [Concomitant]
     Route: 048
     Dates: start: 20040101
  18. PRILOSEC [Concomitant]
     Route: 048
     Dates: start: 20071202
  19. APO-GLICLAZIDE [Concomitant]
     Route: 048
     Dates: start: 20091124
  20. GOLIMUMAB [Suspect]
     Route: 058
     Dates: start: 20110119
  21. NITRO-DUR [Concomitant]
     Route: 061
     Dates: start: 20000101

REACTIONS (1)
  - PNEUMONIA [None]
